FAERS Safety Report 13251971 (Version 2)
Quarter: 2017Q2

REPORT INFORMATION
  Report Type: Spontaneous
  Country: US (occurrence: US)
  Receive Date: 20170220
  Receipt Date: 20170407
  Transmission Date: 20170830
  Serious: No
  Sender: FDA-Public Use
  Company Number: US-009507513-1702USA008117

PATIENT
  Sex: Female
  Weight: 87.98 kg

DRUGS (1)
  1. ZOCOR [Suspect]
     Active Substance: SIMVASTATIN
     Dosage: UNK

REACTIONS (2)
  - Drug hypersensitivity [Unknown]
  - Muscle spasms [Unknown]
